FAERS Safety Report 21881561 (Version 3)
Quarter: 2023Q1

REPORT INFORMATION
  Report Type: Spontaneous
  Country: EG (occurrence: EG)
  Receive Date: 20230119
  Receipt Date: 20230207
  Transmission Date: 20230417
  Serious: Yes (Life-Threatening, Other)
  Sender: FDA-Public Use
  Company Number: EG-NOVOPROD-1012925

PATIENT
  Age: 49 Year
  Sex: Female
  Weight: 90 kg

DRUGS (2)
  1. INSULIN HUMAN [Suspect]
     Active Substance: INSULIN HUMAN
     Indication: Diabetes mellitus
     Dosage: 90 IU, QD (60 U AT MORNING AND 30U AT NIGHT)
     Route: 058
  2. INSULIN HUMAN [Suspect]
     Active Substance: INSULIN HUMAN
     Dosage: 100 IU, QD (70 U AT MORNING AND 30 U AT NIGHT)
     Route: 058

REACTIONS (2)
  - Breast cancer [Recovered/Resolved]
  - Wrong technique in product usage process [Unknown]
